FAERS Safety Report 5195200-X (Version None)
Quarter: 2006Q4

REPORT INFORMATION
  Report Type: 
  Country: None (occurrence: None)
  Receive Date: 20061229
  Receipt Date: 20061013
  Transmission Date: 20070319
  Serious: Yes (Hospitalization)
  Sender: FDA-Public Use
  Company Number: JP-PFIZER INC-2006126624

PATIENT
  Sex: Female
  Weight: 46.5 kg

DRUGS (3)
  1. SOMAVERT [Suspect]
     Indication: ACROMEGALY
     Dosage: DAILY DOSE:10MG
     Route: 058
  2. PRAVASTATIN SODIUM [Concomitant]
     Route: 048
  3. ISOPHANE INSULIN [Concomitant]
     Indication: DIABETES MELLITUS
     Route: 058
     Dates: start: 20051219

REACTIONS (16)
  - ANAEMIA [None]
  - DRUG EFFECT DECREASED [None]
  - DRUG INTERACTION [None]
  - DUODENAL ULCER [None]
  - GASTRITIS ATROPHIC [None]
  - HAEMATURIA [None]
  - HELICOBACTER GASTRITIS [None]
  - LEUKOPENIA [None]
  - OEDEMA [None]
  - OEDEMA PERIPHERAL [None]
  - PHARYNGEAL ERYTHEMA [None]
  - REFLUX OESOPHAGITIS [None]
  - RHINITIS ALLERGIC [None]
  - TONSILLAR HYPERTROPHY [None]
  - UPPER RESPIRATORY TRACT INFECTION [None]
  - UTERINE LEIOMYOMA [None]
